FAERS Safety Report 10152823 (Version 1)
Quarter: 2014Q2

REPORT INFORMATION
  Report Type: Spontaneous
  Country: US (occurrence: US)
  Receive Date: 20140505
  Receipt Date: 20140505
  Transmission Date: 20141212
  Serious: Yes (Other)
  Sender: FDA-Public Use
  Company Number: PHEH2014US008691

PATIENT
  Sex: Male
  Weight: 108.84 kg

DRUGS (3)
  1. RITALIN [Suspect]
     Indication: ATTENTION DEFICIT/HYPERACTIVITY DISORDER
     Dosage: UNK UKN, UNK
  2. RITALIN [Suspect]
     Indication: SOMNOLENCE
  3. RITALIN [Suspect]
     Indication: OFF LABEL USE

REACTIONS (5)
  - Suicidal ideation [Unknown]
  - Homicidal ideation [Unknown]
  - Bipolar disorder [Unknown]
  - Insomnia [Unknown]
  - Drug ineffective [Unknown]
